FAERS Safety Report 9643616 (Version 2)
Quarter: 2014Q2

REPORT INFORMATION
  Report Type: Report from Study
  Country: US (occurrence: US)
  Receive Date: 20131024
  Receipt Date: 20140422
  Transmission Date: 20141212
  Serious: Yes (Death)
  Sender: FDA-Public Use
  Company Number: US-VIIV HEALTHCARE LIMITED-B0934778A

PATIENT
  Age: 49 Year
  Sex: Male
  Weight: 90 kg

DRUGS (15)
  1. MARAVIROC [Suspect]
     Indication: HIV INFECTION
     Dosage: 300MG TWICE PER DAY
     Route: 048
     Dates: start: 20130606
  2. ESCITALOPRAM OXALATE [Concomitant]
     Dates: start: 20080924
  3. OLMESARTAN MEDOXOMIL [Concomitant]
     Dates: start: 20040317
  4. PERCOCET [Concomitant]
     Dates: start: 20090916
  5. COMBIVENT [Concomitant]
     Dates: start: 20110413
  6. AMBIEN CR [Concomitant]
     Dates: start: 20111209
  7. XANAX [Concomitant]
     Dates: start: 20120210
  8. LIPITOR [Concomitant]
     Dosage: 20MG PER DAY
     Dates: start: 20050506
  9. DEPO TESTOSTERONE [Concomitant]
     Dates: start: 20110712
  10. VITAMIN D SUPPLEMENT [Concomitant]
     Dates: start: 201201
  11. NIACIN [Concomitant]
     Dates: start: 20130308
  12. INTELENCE [Concomitant]
     Dosage: 200MG TWICE PER DAY
  13. ISENTRESS [Concomitant]
     Dosage: 400MG TWICE PER DAY
  14. BENICAR HCT [Concomitant]
     Dates: start: 20100330
  15. ZETIA [Concomitant]
     Dosage: 10MG PER DAY
     Dates: start: 20040206

REACTIONS (1)
  - Myocardial infarction [Fatal]
